FAERS Safety Report 15708102 (Version 2)
Quarter: 2019Q1

REPORT INFORMATION
  Report Type: Report from Study
  Country: None (occurrence: US)
  Receive Date: 20181211
  Receipt Date: 20190114
  Transmission Date: 20190417
  Serious: Yes (Other)
  Sender: FDA-Public Use
  Company Number: US-ABBVIE-18K-163-2527193-00

PATIENT
  Sex: Female

DRUGS (1)
  1. HUMIRA [Suspect]
     Active Substance: ADALIMUMAB
     Indication: CROHN^S DISEASE
     Route: 058
     Dates: start: 201806

REACTIONS (8)
  - Breakthrough pain [Unknown]
  - Drug ineffective [Recovering/Resolving]
  - Rectal abscess [Unknown]
  - Headache [Recovered/Resolved]
  - Pain [Recovered/Resolved]
  - Gastrointestinal disorder [Unknown]
  - Anal incontinence [Unknown]
  - Anal abscess [Unknown]

NARRATIVE: CASE EVENT DATE: 2018
